FAERS Safety Report 10071750 (Version 1)
Quarter: 2014Q2

REPORT INFORMATION
  Report Type: Report from Study
  Country: CA (occurrence: CA)
  Receive Date: 20140411
  Receipt Date: 20140411
  Transmission Date: 20141212
  Serious: Yes (Other)
  Sender: FDA-Public Use
  Company Number: CA-JNJFOC-20140404675

PATIENT
  Age: 38 Year
  Sex: Female
  Weight: 63.6 kg

DRUGS (10)
  1. REMICADE [Suspect]
     Indication: CROHN^S DISEASE
     Dosage: INFUSION # 20
     Route: 042
     Dates: start: 20140404
  2. REMICADE [Suspect]
     Indication: CROHN^S DISEASE
     Route: 042
     Dates: start: 20110705
  3. REMICADE [Suspect]
     Indication: CROHN^S DISEASE
     Route: 042
     Dates: start: 2014
  4. IMURAN [Concomitant]
     Route: 065
  5. CALCIUM [Concomitant]
     Route: 065
  6. VITAMIN D [Concomitant]
     Route: 065
  7. BIOTIN [Concomitant]
     Route: 065
  8. SALOFALK ENEMA [Concomitant]
     Route: 065
  9. ASACOL [Concomitant]
     Route: 065
  10. SOLUCORTEF [Concomitant]
     Indication: PREMEDICATION
     Route: 065

REACTIONS (1)
  - Migraine [Recovered/Resolved]
